FAERS Safety Report 6133446-4 (Version None)
Quarter: 2009Q1

REPORT INFORMATION
  Report Type: 
  Country: None (occurrence: None)
  Receive Date: 20090326
  Receipt Date: 20090317
  Transmission Date: 20090719
  Serious: Yes (Hospitalization)
  Sender: FDA-Public Use
  Company Number: PHHO2003GB07674

PATIENT
  Sex: Male
  Weight: 79.6 kg

DRUGS (4)
  1. STARLIX DJN+TAB [Suspect]
     Indication: GLUCOSE TOLERANCE IMPAIRED
     Dosage: 60 MG, LEVEL 2
     Route: 048
     Dates: start: 20030124
  2. PLACEBO [Suspect]
     Dosage: LEVEL 2
     Route: 048
     Dates: start: 20030124
  3. CO-TENIDONE [Concomitant]
     Indication: HYPERTENSION
     Route: 048
     Dates: start: 19970806
  4. RANIDINE [Concomitant]
     Indication: DYSPEPSIA
     Dosage: 150 MG, UNK
     Route: 048
     Dates: start: 19920820

REACTIONS (5)
  - ABDOMINAL PAIN [None]
  - CHOLECYSTECTOMY [None]
  - CHOLELITHIASIS [None]
  - PANCREATITIS [None]
  - VOMITING [None]
